FAERS Safety Report 11626350 (Version 1)
Quarter: 2015Q4

REPORT INFORMATION
  Report Type: Spontaneous
  Country: US (occurrence: US)
  Receive Date: 20151013
  Receipt Date: 20151013
  Transmission Date: 20160304
  Serious: No
  Sender: FDA-Public Use
  Company Number: US-ROCHE-1521950

PATIENT
  Sex: Female

DRUGS (27)
  1. TOPAMAX [Concomitant]
     Active Substance: TOPIRAMATE
     Dosage: 3 IN THE MORNING, 3 IN THE NIGHT
     Route: 065
     Dates: start: 20091110
  2. CLINDAMYCIN HCL [Concomitant]
     Active Substance: CLINDAMYCIN HYDROCHLORIDE
     Dosage: 1 CAPSULE, 1 HOUR BEFORE DENTAL APPOINTMENT
     Route: 065
  3. TRAMADOL. [Concomitant]
     Active Substance: TRAMADOL
     Dosage: 1 TABLET AS NEEDED
     Route: 065
  4. NAPROSYN [Suspect]
     Active Substance: NAPROXEN
     Indication: PRODUCT USED FOR UNKNOWN INDICATION
     Route: 065
  5. SINUS RINSE (UNK INGREDIENTS) [Concomitant]
     Dosage: 1 - 2 TIMES A DAY NASAL
     Route: 065
  6. ABILIFY [Concomitant]
     Active Substance: ARIPIPRAZOLE
     Dosage: 1 TABLET
     Route: 065
  7. FLOXIN (UNITED STATES) [Concomitant]
     Route: 065
     Dates: start: 200103
  8. VALIUM [Concomitant]
     Active Substance: DIAZEPAM
     Dosage: 1 TABLET, 1 TO 2 TIMES A DAY AS NEEDED
     Route: 065
  9. GAS-X [Concomitant]
     Active Substance: DIMETHICONE
     Dosage: 2 TABLETS
     Route: 065
  10. FLUOCINONIDE CREAM [Concomitant]
     Active Substance: FLUOCINONIDE
     Route: 065
  11. BEANO [Concomitant]
     Active Substance: ASPERGILLUS NIGER .ALPHA.-GALACTOSIDASE
     Dosage: 2 TABLETS
     Route: 065
  12. SOMA [Concomitant]
     Active Substance: CARISOPRODOL
  13. TEQUIN [Concomitant]
     Active Substance: GATIFLOXACIN
     Route: 065
     Dates: start: 200508
  14. ASTEPRO [Concomitant]
     Active Substance: AZELASTINE HYDROCHLORIDE
     Dosage: 1 SPRAY IN EACH NOSTRIL
     Route: 065
  15. COLACE [Concomitant]
     Active Substance: DOCUSATE SODIUM
     Dosage: 1 SOFTGEL CAPSULE
     Route: 065
  16. MAXALT [Concomitant]
     Active Substance: RIZATRIPTAN BENZOATE
     Route: 065
  17. MOBIC [Concomitant]
     Active Substance: MELOXICAM
     Dosage: 1-2 A DAY
     Route: 065
  18. NASONEX [Concomitant]
     Active Substance: MOMETASONE FUROATE
     Dosage: 2 SPRAYS IN EACH NOSTRIL DAILY
     Route: 065
  19. AUGMENTIN [Concomitant]
     Active Substance: AMOXICILLIN\CLAVULANATE POTASSIUM
     Route: 065
     Dates: start: 200508
  20. NORTRIPTYLINE [Concomitant]
     Active Substance: NORTRIPTYLINE
  21. LIDOCAINE HCL [Concomitant]
     Active Substance: LIDOCAINE HYDROCHLORIDE
     Dosage: 2-3 TIMES A DAY, 3-5 PUMPS
     Route: 065
  22. PRISTIQ EXTENDED RELEASE [Concomitant]
     Active Substance: DESVENLAFAXINE SUCCINATE
     Route: 065
  23. SYNTHROID [Concomitant]
     Active Substance: LEVOTHYROXINE SODIUM
     Route: 065
  24. METAMUCIL [Concomitant]
     Active Substance: PLANTAGO SEED
     Dosage: 2 TABLESPOONS WITH 1/2 CUP LIQUID
     Route: 065
  25. PANTOPRAZOLE SODIUM. [Concomitant]
     Active Substance: PANTOPRAZOLE SODIUM
     Dosage: 1 TABLET
     Route: 065
  26. HALOBETASOL PROPIONATE. [Concomitant]
     Active Substance: HALOBETASOL PROPIONATE
     Dosage: AS NEEDED
     Route: 065
  27. RITALIN [Concomitant]
     Active Substance: METHYLPHENIDATE HYDROCHLORIDE
     Route: 065
     Dates: start: 2009

REACTIONS (1)
  - Drug hypersensitivity [Unknown]
